FAERS Safety Report 10079505 (Version 1)
Quarter: 2014Q2

REPORT INFORMATION
  Report Type: Spontaneous
  Country: NL (occurrence: NL)
  Receive Date: 20140415
  Receipt Date: 20140415
  Transmission Date: 20141212
  Serious: Yes (Hospitalization)
  Sender: FDA-Public Use
  Company Number: NL-IPSEN BIOPHARMACEUTICALS, INC.-2014-1752

PATIENT
  Age: 78 Year
  Sex: Female

DRUGS (1)
  1. SOMATULINE AUTOSOLUTION 90MG [Suspect]
     Indication: PRODUCT USED FOR UNKNOWN INDICATION
     Dosage: 90 MG
     Route: 058
     Dates: start: 20140307

REACTIONS (1)
  - Fall [Recovered/Resolved]
